FAERS Safety Report 5507182-9 (Version None)
Quarter: 2007Q4

REPORT INFORMATION
  Report Type: 
  Country: None (occurrence: None)
  Receive Date: 20071017
  Receipt Date: 20071005
  Transmission Date: 20080405
  Serious: Yes (Death, Hospitalization)
  Sender: FDA-Public Use
  Company Number: WSDF_00563

PATIENT
  Age: 66 Year
  Sex: Male
  Weight: 112.4921 kg

DRUGS (10)
  1. WINRHO SDF [Suspect]
     Indication: IDIOPATHIC THROMBOCYTOPENIC PURPURA
     Dosage: 50 UG/KG ONCE IV
     Route: 042
     Dates: start: 20060620, end: 20060620
  2. WINRHO SDF [Suspect]
     Indication: IDIOPATHIC THROMBOCYTOPENIC PURPURA
     Dosage: 50 UG/KG ONCE IV
     Route: 042
     Dates: start: 20060627, end: 20060627
  3. WINRHO SDF [Suspect]
     Indication: IDIOPATHIC THROMBOCYTOPENIC PURPURA
     Dates: start: 20060629, end: 20060629
  4. ATENOLOL [Concomitant]
  5. POTASSIUM CHLORIDE [Concomitant]
  6. LASIX [Concomitant]
  7. ASPIRIN [Concomitant]
  8. VITAMIN CAP [Concomitant]
  9. VITAMIN B COMPLEX CAP [Concomitant]
  10. LIPITOR [Concomitant]

REACTIONS (27)
  - ACUTE HEPATIC FAILURE [None]
  - AORTIC ARTERIOSCLEROSIS [None]
  - ARTERIOSCLEROSIS [None]
  - CARDIOMEGALY [None]
  - CHOLELITHIASIS [None]
  - CHOLESTEROSIS [None]
  - COAGULOPATHY [None]
  - COCCIDIOIDOMYCOSIS [None]
  - CORONARY ARTERY DISEASE [None]
  - DIALYSIS [None]
  - EXTRAMEDULLARY HAEMOPOIESIS [None]
  - EXTRAVASCULAR HAEMOLYSIS [None]
  - FUNGAL SEPSIS [None]
  - GASTRIC HAEMORRHAGE [None]
  - GLOMERULONEPHRITIS MEMBRANOPROLIFERATIVE [None]
  - HEPATIC CIRRHOSIS [None]
  - MYOCARDIAL INFARCTION [None]
  - PETECHIAE [None]
  - PNEUMONIA FUNGAL [None]
  - PNEUMONIA HERPES VIRAL [None]
  - PORTAL HYPERTENSION [None]
  - PULMONARY ALVEOLAR HAEMORRHAGE [None]
  - RENAL FAILURE ACUTE [None]
  - RENAL TUBULAR NECROSIS [None]
  - SPLENOMEGALY [None]
  - TRACHEAL HAEMORRHAGE [None]
  - VARICES OESOPHAGEAL [None]
